FAERS Safety Report 7127430-1 (Version None)
Quarter: 2010Q4

REPORT INFORMATION
  Report Type: 
  Country: None (occurrence: None)
  Receive Date: 20101129
  Receipt Date: 20100604
  Transmission Date: 20110411
  Serious: Yes (Other)
  Sender: FDA-Public Use
  Company Number: US-PFIZER INC-2010071188

PATIENT
  Sex: Female
  Weight: 104.3 kg

DRUGS (20)
  1. REVATIO [Suspect]
     Indication: PULMONARY HYPERTENSION
     Dosage: 60 MG, 3X/DAY
     Route: 048
     Dates: start: 20070101, end: 20100526
  2. REVATIO [Suspect]
     Dosage: 40 MG, 3X/DAY
     Route: 048
     Dates: start: 20100526, end: 20100527
  3. REVATIO [Suspect]
     Dosage: 20 MG, 3X/DAY
     Route: 048
     Dates: start: 20100527, end: 20100528
  4. ALLOPURINOL [Concomitant]
     Dosage: 100MG TWO TABLETS DAILY
  5. PERCOCET [Concomitant]
     Dosage: 7.5/500 MG, EVERY 4 HOURS AS NEEDED
  6. TRAZODONE [Concomitant]
     Dosage: 50 MG, AT NIGHT
  7. LYRICA [Concomitant]
     Dosage: 75 MG, 2X/DAY
  8. LOVASTATIN [Concomitant]
     Dosage: 20 MG, DAILY
  9. DEMADEX [Concomitant]
     Dosage: 40 MG AM, 20 MG AT NOON
     Route: 048
  10. METFORMIN HCL [Concomitant]
     Dosage: 1000 MG, 2X/DAY
  11. CYMBALTA [Concomitant]
     Dosage: 60MG, TWO CAPSULES DAILY
  12. CALCIUM CARBONATE [Concomitant]
     Dosage: 2400MG AM, 1800MG PM
  13. LISINOPRIL [Concomitant]
     Dosage: 10 MG, 1X/DAY
  14. DIAZEPAM [Concomitant]
     Dosage: 1/2-1 TAB AS NEEDED
  15. SPIRONOLACTONE [Concomitant]
     Dosage: 50 MG, 1X/DAY
  16. COREG [Concomitant]
     Dosage: 60 MG, 1X/DAY
  17. SITAGLIPTIN [Concomitant]
     Dosage: 100 MG, DAILY
  18. NEXIUM [Concomitant]
     Dosage: 40 MG, DAILY
  19. SYNTHROID [Concomitant]
     Dosage: 200UG, TWO TABLETS DAILY
  20. TAMOXIFEN [Concomitant]
     Dosage: 20 MG, DAILY

REACTIONS (3)
  - INCORRECT DOSE ADMINISTERED [None]
  - MALAISE [None]
  - PULMONARY HYPERTENSION [None]
